FAERS Safety Report 9394883 (Version 19)
Quarter: 2018Q3

REPORT INFORMATION
  Report Type: Spontaneous
  Country: CA (occurrence: CA)
  Receive Date: 20130711
  Receipt Date: 20180727
  Transmission Date: 20181010
  Serious: Yes (Hospitalization, Other)
  Sender: FDA-Public Use
  Company Number: CA-ROCHE-1243260

PATIENT
  Age: 39 Year
  Sex: Male

DRUGS (12)
  1. NUCALA [Concomitant]
     Active Substance: MEPOLIZUMAB
     Indication: PRODUCT USED FOR UNKNOWN INDICATION
     Dosage: FOURTH INJECTION TODAY (19/JUL/2018).
     Route: 065
  2. XOLAIR [Suspect]
     Active Substance: OMALIZUMAB
     Route: 058
     Dates: start: 20130528
  3. XOLAIR [Suspect]
     Active Substance: OMALIZUMAB
     Route: 058
     Dates: start: 20130725
  4. XOLAIR [Suspect]
     Active Substance: OMALIZUMAB
     Route: 058
     Dates: start: 20140206
  5. ADVAIR HFA [Concomitant]
     Active Substance: FLUTICASONE PROPIONATE\SALMETEROL XINAFOATE
     Indication: PRODUCT USED FOR UNKNOWN INDICATION
     Route: 065
  6. VENTOLIN [Concomitant]
     Active Substance: ALBUTEROL SULFATE
     Indication: PRODUCT USED FOR UNKNOWN INDICATION
     Dosage: 8 TO 10 DF (PUFF), QD
     Route: 065
  7. ACETAZOLAMIDE. [Concomitant]
     Active Substance: ACETAZOLAMIDE
     Dosage: 1000 MG, (500 MG IN MORNING, 250 MG IN AFTERNOON, 250 MG IN EVENING)
     Route: 065
  8. VITAMIN C [Concomitant]
     Active Substance: ASCORBIC ACID
  9. UNIPHYL [Concomitant]
     Active Substance: THEOPHYLLINE ANHYDROUS
     Indication: PRODUCT USED FOR UNKNOWN INDICATION
     Route: 065
  10. SPIRIVA [Concomitant]
     Active Substance: TIOTROPIUM BROMIDE MONOHYDRATE
     Indication: PRODUCT USED FOR UNKNOWN INDICATION
     Route: 065
  11. ACETAZOLAMIDE. [Concomitant]
     Active Substance: ACETAZOLAMIDE
     Indication: PRODUCT USED FOR UNKNOWN INDICATION
     Dosage: 250 MG IN AFTERNOON AND 250 MG IN EVENING
     Route: 065
  12. XOLAIR [Suspect]
     Active Substance: OMALIZUMAB
     Indication: ASTHMA
     Route: 058
     Dates: start: 20130425

REACTIONS (29)
  - Lung disorder [Unknown]
  - Injection site pain [Unknown]
  - Malaise [Unknown]
  - Oropharyngeal pain [Unknown]
  - Headache [Unknown]
  - Musculoskeletal discomfort [Unknown]
  - Wheezing [Unknown]
  - Chronic obstructive pulmonary disease [Unknown]
  - Immune system disorder [Unknown]
  - Pneumonia [Unknown]
  - Dyspnoea [Unknown]
  - Cerebrospinal fluid retention [Unknown]
  - Vomiting [Not Recovered/Not Resolved]
  - Nephrolithiasis [Unknown]
  - Insomnia [Unknown]
  - Dizziness [Not Recovered/Not Resolved]
  - Brain hypoxia [Unknown]
  - Pharyngitis streptococcal [Unknown]
  - Stress [Unknown]
  - Thyroid neoplasm [Unknown]
  - Blood pressure increased [Unknown]
  - Blood parathyroid hormone increased [Unknown]
  - Loss of consciousness [Unknown]
  - Nausea [Unknown]
  - Renal pain [Unknown]
  - Fatigue [Not Recovered/Not Resolved]
  - Middle insomnia [Unknown]
  - Dehydration [Unknown]
  - Asthma [Unknown]

NARRATIVE: CASE EVENT DATE: 20130425
